FAERS Safety Report 12913549 (Version 2)
Quarter: 2017Q2

REPORT INFORMATION
  Report Type: Report from Study
  Country: US (occurrence: US)
  Receive Date: 20161104
  Receipt Date: 20170621
  Transmission Date: 20170830
  Serious: Yes (Other)
  Sender: FDA-Public Use
  Company Number: US-BIOGEN-2016BI00311954

PATIENT
  Sex: Male
  Weight: 104.42 kg

DRUGS (1)
  1. TECFIDERA [Suspect]
     Active Substance: DIMETHYL FUMARATE
     Indication: MULTIPLE SCLEROSIS
     Dosage: MAINTENANCE DOSE
     Route: 048
     Dates: start: 20140116

REACTIONS (2)
  - Hip surgery [Recovered/Resolved with Sequelae]
  - Drug delivery device implantation [Recovered/Resolved]

NARRATIVE: CASE EVENT DATE: 2016
